FAERS Safety Report 8101511-8 (Version None)
Quarter: 2012Q1

REPORT INFORMATION
  Report Type: 
  Country: None (occurrence: None)
  Receive Date: 20120129
  Receipt Date: 20111011
  Transmission Date: 20120608
  Serious: No
  Sender: FDA-Public Use
  Company Number: US-ABBOTT-11P-163-0863174-00

PATIENT
  Age: 30 Year
  Sex: Female

DRUGS (3)
  1. HUMIRA [Suspect]
     Indication: PSORIATIC ARTHROPATHY
     Dates: start: 20101101
  2. CITALOPRAM [Concomitant]
     Indication: ANXIETY
  3. CITALOPRAM [Concomitant]
     Indication: DEPRESSION

REACTIONS (4)
  - MUSCLE SPASMS [None]
  - CHEST PAIN [None]
  - WEIGHT INCREASED [None]
  - VITAMIN D DEFICIENCY [None]
